FAERS Safety Report 8615284-3 (Version None)
Quarter: 2012Q3

REPORT INFORMATION
  Report Type: 
  Country: None (occurrence: None)
  Receive Date: 20120823
  Receipt Date: 20120815
  Transmission Date: 20120928
  Serious: No
  Sender: FDA-Public Use
  Company Number: US-PFIZER INC-2012203575

PATIENT
  Sex: Female

DRUGS (1)
  1. CALAN [Suspect]
     Dosage: UNK

REACTIONS (3)
  - ERYTHEMA [None]
  - DYSPNOEA [None]
  - DYSKINESIA [None]
